FAERS Safety Report 19014182 (Version 1)
Quarter: 2021Q1

REPORT INFORMATION
  Report Type: Other
  Country: CN (occurrence: CN)
  Receive Date: 20210316
  Receipt Date: 20210316
  Transmission Date: 20210420
  Serious: Yes (Other)
  Sender: FDA-Public Use
  Company Number: CN-ROCHE-2782180

PATIENT

DRUGS (4)
  1. SARILUMAB [Suspect]
     Active Substance: SARILUMAB
     Indication: COVID-19
     Route: 065
  2. RIBAVIRIN. [Suspect]
     Active Substance: RIBAVIRIN
     Indication: COVID-19
     Route: 065
  3. TOCILIZUMAB. [Suspect]
     Active Substance: TOCILIZUMAB
     Indication: COVID-19
     Route: 065
  4. CEFTRIAXONE. [Suspect]
     Active Substance: CEFTRIAXONE
     Indication: COVID-19
     Route: 065

REACTIONS (10)
  - Myocardial infarction [Unknown]
  - Cardiac failure [Unknown]
  - Arrhythmia [Unknown]
  - Tachycardia [Unknown]
  - Cardiac arrest [Unknown]
  - Bradycardia [Unknown]
  - Coronary artery disease [Unknown]
  - Atrial fibrillation [Unknown]
  - Palpitations [Unknown]
  - Off label use [Unknown]
